FAERS Safety Report 23360392 (Version 1)
Quarter: 2024Q1

REPORT INFORMATION
  Report Type: Spontaneous
  Country: PT (occurrence: PT)
  Receive Date: 20240103
  Receipt Date: 20240103
  Transmission Date: 20240409
  Serious: Yes (Hospitalization, Other)
  Sender: FDA-Public Use
  Company Number: None

PATIENT
  Age: 77 Year
  Sex: Male

DRUGS (1)
  1. PREDNISOLONE [Suspect]
     Active Substance: PREDNISOLONE
     Indication: Organising pneumonia
     Dosage: 1 MILLIGRAM/KILOGRAM
     Route: 065

REACTIONS (6)
  - Vasogenic cerebral oedema [None]
  - Aphasia [Recovered/Resolved]
  - Listeriosis [Recovered/Resolved]
  - Encephalitis [Unknown]
  - Brain abscess [None]
  - Off label use [Unknown]
